FAERS Safety Report 16914142 (Version 2)
Quarter: 2020Q1

REPORT INFORMATION
  Report Type: Spontaneous
  Country: US (occurrence: US)
  Receive Date: 20191014
  Receipt Date: 20200103
  Transmission Date: 20200409
  Serious: No
  Sender: FDA-Public Use
  Company Number: US-PFIZER INC-2019439646

PATIENT
  Age: 64 Year
  Sex: Female
  Weight: 72 kg

DRUGS (5)
  1. NORTRIPTYLINE [Concomitant]
     Active Substance: NORTRIPTYLINE
     Dosage: 50 MG, 1X/DAY [25 MG 2 AT NIGHT]
     Dates: start: 2017
  2. TIZANIDINE. [Concomitant]
     Active Substance: TIZANIDINE
     Dosage: 4 MG, 3X/DAY
     Dates: start: 2015
  3. LYRICA [Suspect]
     Active Substance: PREGABALIN
     Indication: NEURALGIA
     Dosage: 100 MG, 4X/DAY
     Dates: start: 2016
  4. FENTANYL. [Concomitant]
     Active Substance: FENTANYL
     Dosage: 25 UG, UNK
     Dates: start: 201506
  5. OXYCODONE AND ACETAMINOPHEN [Concomitant]
     Active Substance: ACETAMINOPHEN\OXYCODONE HYDROCHLORIDE
     Dosage: UNK, 4X/DAY
     Dates: start: 201506

REACTIONS (2)
  - Transcription medication error [Unknown]
  - Drug ineffective [Unknown]
